FAERS Safety Report 17039936 (Version 1)
Quarter: 2019Q4

REPORT INFORMATION
  Report Type: Spontaneous
  Country: AU (occurrence: AU)
  Receive Date: 20191116
  Receipt Date: 20191116
  Transmission Date: 20200122
  Serious: Yes (Hospitalization, Other)
  Sender: FDA-Public Use
  Company Number: AU-BION-008384

PATIENT
  Age: 75 Year
  Sex: Male

DRUGS (6)
  1. LOPERAMIDE HYDROCHLORIDE. [Suspect]
     Active Substance: LOPERAMIDE HYDROCHLORIDE
     Indication: GASTROENTERITIS
     Dosage: 4 MG
  2. IRBESARTAN. [Concomitant]
     Active Substance: IRBESARTAN
  3. PANTOPRAZOLE [Concomitant]
     Active Substance: PANTOPRAZOLE
  4. EMPAGLIFLOZIN/METFORMIN [Concomitant]
  5. COLECALCIFEROL [Concomitant]
     Active Substance: CHOLECALCIFEROL
  6. MAGNESIUM [Concomitant]
     Active Substance: MAGNESIUM

REACTIONS (2)
  - Anaphylactic reaction [Recovered/Resolved]
  - Diarrhoea [Recovered/Resolved]
